FAERS Safety Report 5728351-9 (Version None)
Quarter: 2008Q2

REPORT INFORMATION
  Report Type: 
  Country: None (occurrence: None)
  Receive Date: 20080506
  Receipt Date: 20080428
  Transmission Date: 20081010
  Serious: Yes (Death)
  Sender: FDA-Public Use
  Company Number: US-PURDUE-USA_2008_0032602

PATIENT
  Age: 52 Year
  Sex: Female

DRUGS (1)
  1. OXYIR [Suspect]
     Indication: DRUG USE FOR UNKNOWN INDICATION
     Dosage: 5 MG, SEE TEXT
     Dates: start: 20071101, end: 20080101

REACTIONS (1)
  - DEATH [None]
